FAERS Safety Report 7051689-2 (Version None)
Quarter: 2010Q4

REPORT INFORMATION
  Report Type: 
  Country: None (occurrence: None)
  Receive Date: 20101018
  Receipt Date: 20101018
  Transmission Date: 20110411
  Serious: Yes (Other)
  Sender: FDA-Public Use
  Company Number: None

PATIENT
  Age: 56 Year
  Sex: Female
  Weight: 58.9676 kg

DRUGS (7)
  1. ACTONEL [Suspect]
     Indication: OSTEOPOROSIS
     Dosage: PO  ONE DOSE ONLY
     Route: 048
  2. BONIVA [Suspect]
     Indication: OSTEOPOROSIS
     Dosage: PO  ONE DOSE ONLY
  3. ACCUPRIL [Concomitant]
  4. TORSEMIDE [Concomitant]
  5. SPIRONOLACTONE [Concomitant]
  6. ZYRTEC [Concomitant]
  7. MULTI-VITAMIN [Concomitant]

REACTIONS (7)
  - ARTHRALGIA [None]
  - BACK PAIN [None]
  - FATIGUE [None]
  - GAIT DISTURBANCE [None]
  - MOVEMENT DISORDER [None]
  - MYALGIA [None]
  - ROTATOR CUFF REPAIR [None]
